FAERS Safety Report 14192593 (Version 1)
Quarter: 2017Q4

REPORT INFORMATION
  Report Type: Other
  Country: UA (occurrence: UA)
  Receive Date: 20171115
  Receipt Date: 20171115
  Transmission Date: 20180321
  Serious: Yes (Hospitalization)
  Sender: FDA-Public Use
  Company Number: UA-SYMPLMED PHARMACEUTICALS-2017SYMPLMED000486

PATIENT

DRUGS (1)
  1. BI-PRESTARIUM [Suspect]
     Active Substance: AMLODIPINE BESYLATE\PERINDOPRIL ARGININE
     Indication: MYOCARDIAL ISCHAEMIA
     Dosage: 1 DF (10MG/5MG) TABLET QD
     Route: 048
     Dates: start: 20130514, end: 201305

REACTIONS (6)
  - Nausea [Recovered/Resolved]
  - Back pain [Recovered/Resolved]
  - Abdominal pain upper [Recovered/Resolved]
  - Depression [Recovered/Resolved]
  - Tachycardia [Recovered/Resolved]
  - Headache [Recovered/Resolved]

NARRATIVE: CASE EVENT DATE: 20130514
